FAERS Safety Report 10343346 (Version 1)
Quarter: 2014Q3

REPORT INFORMATION
  Report Type: Spontaneous
  Country: US (occurrence: US)
  Receive Date: 20140725
  Receipt Date: 20140725
  Transmission Date: 20150326
  Serious: No
  Sender: FDA-Public Use
  Company Number: US-BAYER-2014-111952

PATIENT
  Age: 30 Year
  Sex: Female

DRUGS (1)
  1. MIRENA [Suspect]
     Active Substance: LEVONORGESTREL
     Indication: CONTRACEPTION
     Dosage: 20 MCG/24HR, CONT
     Route: 015
     Dates: start: 201406

REACTIONS (8)
  - Nausea [None]
  - Hunger [None]
  - Migraine [None]
  - Feeling abnormal [None]
  - Emotional disorder [None]
  - Skin disorder [None]
  - Vomiting [None]
  - Acne [None]
